FAERS Safety Report 7560580-4 (Version None)
Quarter: 2011Q2

REPORT INFORMATION
  Report Type: 
  Country: None (occurrence: None)
  Receive Date: 20110621
  Receipt Date: 20101012
  Transmission Date: 20111010
  Serious: No
  Sender: FDA-Public Use
  Company Number: US-ASTRAZENECA-2010SE48240

PATIENT
  Age: 5 Year
  Sex: Male
  Weight: 19.5 kg

DRUGS (1)
  1. ENTOCORT EC [Suspect]
     Indication: OESOPHAGITIS
     Route: 048
     Dates: start: 20100924

REACTIONS (4)
  - URTICARIA [None]
  - IRRITABILITY [None]
  - AGGRESSION [None]
  - ASTHMA [None]
